FAERS Safety Report 15620943 (Version 8)
Quarter: 2019Q1

REPORT INFORMATION
  Report Type: Spontaneous
  Country: CA (occurrence: CA)
  Receive Date: 20181115
  Receipt Date: 20190221
  Transmission Date: 20190417
  Serious: Yes (Hospitalization, Other)
  Sender: FDA-Public Use
  Company Number: CA-PFIZER INC-2018320825

PATIENT
  Age: 57 Year
  Sex: Female

DRUGS (5)
  1. XELJANZ [Suspect]
     Active Substance: TOFACITINIB CITRATE
     Dosage: 5 MG, 1X/DAY
     Route: 048
     Dates: start: 20180818, end: 201809
  2. XELJANZ [Suspect]
     Active Substance: TOFACITINIB CITRATE
     Indication: RHEUMATOID ARTHRITIS
     Dosage: 5 MG, 1X/DAY
     Route: 048
     Dates: start: 20180807
  3. XELJANZ [Suspect]
     Active Substance: TOFACITINIB CITRATE
     Dosage: 5 MG, 2X/DAY
     Route: 048
     Dates: start: 2018, end: 201902
  4. MORPHINE [Concomitant]
     Active Substance: MORPHINE
     Indication: PAIN
     Dosage: ^1 OR 2^
  5. XELJANZ [Suspect]
     Active Substance: TOFACITINIB CITRATE
     Dosage: 5 MG, 2X/DAY
     Route: 048
     Dates: start: 20180918

REACTIONS (42)
  - Tonsillar hypertrophy [Recovered/Resolved]
  - Tonsillar disorder [Recovered/Resolved]
  - Drug ineffective [Not Recovered/Not Resolved]
  - Night sweats [Recovering/Resolving]
  - Stomach mass [Unknown]
  - Pyrexia [Unknown]
  - Body temperature increased [Recovered/Resolved]
  - Musculoskeletal pain [Unknown]
  - Pruritus [Recovered/Resolved]
  - Vision blurred [Unknown]
  - Lipoma [Unknown]
  - Dysphagia [Unknown]
  - Condition aggravated [Unknown]
  - Gait disturbance [Unknown]
  - Limb mass [Unknown]
  - Insomnia [Unknown]
  - Abdominal pain upper [Recovering/Resolving]
  - Choking [Unknown]
  - Pain in extremity [Unknown]
  - Migraine [Unknown]
  - Upper respiratory tract congestion [Unknown]
  - Hot flush [Recovering/Resolving]
  - Melanocytic naevus [Unknown]
  - Fatigue [Unknown]
  - Fibromyalgia [Unknown]
  - Rash [Unknown]
  - Urticaria [Unknown]
  - Tonsillar erythema [Recovered/Resolved]
  - Peripheral swelling [Unknown]
  - Peripheral coldness [Unknown]
  - Product use issue [Unknown]
  - Jaw disorder [Unknown]
  - Asthenia [Unknown]
  - Hypoaesthesia [Unknown]
  - Lice infestation [Unknown]
  - Acne [Unknown]
  - Birth mark [Unknown]
  - Pain [Not Recovered/Not Resolved]
  - Headache [Not Recovered/Not Resolved]
  - Burning sensation [Not Recovered/Not Resolved]
  - Mobility decreased [Unknown]
  - Cough [Unknown]

NARRATIVE: CASE EVENT DATE: 20180926
